FAERS Safety Report 6904815-7 (Version None)
Quarter: 2010Q3

REPORT INFORMATION
  Report Type: 
  Country: None (occurrence: None)
  Receive Date: 20100804
  Receipt Date: 20090713
  Transmission Date: 20110219
  Serious: No
  Sender: FDA-Public Use
  Company Number: US-PFIZER INC-2009223049

PATIENT
  Sex: Female
  Weight: 68.934 kg

DRUGS (5)
  1. LYRICA [Suspect]
     Indication: FIBROMYALGIA
     Dosage: 50 MG, 2X/DAY
     Route: 048
     Dates: start: 20080301, end: 20090408
  2. PREDNISONE [Concomitant]
     Dosage: UNK
  3. AMITRIPTYLINE [Concomitant]
     Dosage: 25MG AT BEDTIME
     Dates: start: 20080115
  4. RANITIDINE [Concomitant]
     Dosage: 300MG DAILY TO TWICE DAILY
     Dates: start: 20080115
  5. HYDROCODONE BITARTRATE [Concomitant]
     Dosage: UNK
     Dates: start: 20080115

REACTIONS (5)
  - ALOPECIA [None]
  - ANTINUCLEAR ANTIBODY POSITIVE [None]
  - DNA ANTIBODY POSITIVE [None]
  - HISTONE ANTIBODY POSITIVE [None]
  - PAIN [None]
